FAERS Safety Report 13398753 (Version 2)
Quarter: 2017Q2

REPORT INFORMATION
  Report Type: Report from Study
  Country: None (occurrence: CH)
  Receive Date: 20170403
  Receipt Date: 20170417
  Transmission Date: 20170830
  Serious: Yes (Death, Hospitalization)
  Sender: FDA-Public Use
  Company Number: CH-ABBVIE-17P-151-1927696-00

PATIENT
  Age: 76 Year
  Sex: Female

DRUGS (3)
  1. DUODOPA [Suspect]
     Active Substance: CARBIDOPA\LEVODOPA
     Indication: PARKINSON^S DISEASE
     Dosage: AM DOSE:10,0ML, CONT. RATE DAY: 5,0ML/H, EXTRA DOSE:1,5ML-16H THERAPY
     Route: 050
     Dates: start: 20160411
  2. DUODOPA [Suspect]
     Active Substance: CARBIDOPA\LEVODOPA
     Dosage: AM DOSE: 10,0ML, CONT.RATE DAY: 5,2ML/H, EXTRA DOSE: 1,5ML, 15 HR. THERAPY
     Route: 050
  3. DUODOPA [Suspect]
     Active Substance: CARBIDOPA\LEVODOPA
     Dosage: AM DOSE: 10,0ML, CONT.RATE DAY: 4.9ML/H, EXTRA DOSE: 1,5ML,
     Route: 050

REACTIONS (3)
  - Freezing phenomenon [Unknown]
  - Syncope [Unknown]
  - Death [Fatal]

NARRATIVE: CASE EVENT DATE: 20170327
